FAERS Safety Report 5478857-5 (Version None)
Quarter: 2007Q4

REPORT INFORMATION
  Report Type: 
  Country: None (occurrence: None)
  Receive Date: 20071002
  Receipt Date: 20070831
  Transmission Date: 20080405
  Serious: Yes (Other)
  Sender: FDA-Public Use
  Company Number: STI-2007-01429

PATIENT
  Age: 48 Year
  Sex: Female

DRUGS (1)
  1. CLOBETASOL PROPIONATE [Suspect]
     Indication: ECZEMA
     Dosage: AXILLARY REGIONS

REACTIONS (4)
  - CONDITION AGGRAVATED [None]
  - CUSHING'S SYNDROME [None]
  - INTENTIONAL DRUG MISUSE [None]
  - SKIN CANDIDA [None]
